FAERS Safety Report 8018119-5 (Version None)
Quarter: 2012Q1

REPORT INFORMATION
  Report Type: 
  Country: None (occurrence: None)
  Receive Date: 20120103
  Receipt Date: 20111219
  Transmission Date: 20120608
  Serious: Yes (Death)
  Sender: FDA-Public Use
  Company Number: NL-UCBSA-047994

PATIENT
  Age: 43 Year
  Sex: Female

DRUGS (2)
  1. CIMZIA [Suspect]
     Indication: RHEUMATOID ARTHRITIS
     Dosage: LOT NUMBER: 40310, 42829
     Route: 058
     Dates: start: 20100101, end: 20111215
  2. CIMZIA [Suspect]
     Route: 058
     Dates: start: 20100427, end: 20100501

REACTIONS (1)
  - DEATH [None]
